FAERS Safety Report 14968143 (Version 1)
Quarter: 2018Q2

REPORT INFORMATION
  Report Type: Spontaneous
  Country: US (occurrence: US)
  Receive Date: 20180511
  Receipt Date: 20180511
  Transmission Date: 20180711
  Serious: No
  Sender: FDA-Public Use
  Company Number: None

PATIENT
  Age: 59 Year
  Sex: Female

DRUGS (1)
  1. CAPECITABINE TAB [Suspect]
     Active Substance: CAPECITABINE
     Indication: BREAST CANCER
     Dosage: ?          OTHER FREQUENCY:3BID DAY 1-14;?
     Route: 048
     Dates: start: 20180511

REACTIONS (2)
  - Fatigue [None]
  - Alopecia [None]

NARRATIVE: CASE EVENT DATE: 20180511
